FAERS Safety Report 11616219 (Version 3)
Quarter: 2016Q1

REPORT INFORMATION
  Report Type: Spontaneous
  Country: US (occurrence: US)
  Receive Date: 20151009
  Receipt Date: 20160212
  Transmission Date: 20160525
  Serious: Yes (Other)
  Sender: FDA-Public Use
  Company Number: US-AMGEN-USASP2015105362

PATIENT
  Age: 75 Year
  Sex: Female
  Weight: 61.22 kg

DRUGS (11)
  1. DIABAN [Concomitant]
  2. ENBREL [Suspect]
     Active Substance: ETANERCEPT
     Indication: RHEUMATOID ARTHRITIS
     Dosage: 50 MG, WEEKLY
     Route: 058
     Dates: start: 201002
  3. PROLIA [Suspect]
     Active Substance: DENOSUMAB
     Indication: PRODUCT USED FOR UNKNOWN INDICATION
     Dosage: UNK
     Route: 065
  4. ESTRACE [Concomitant]
     Active Substance: ESTRADIOL
  5. CALCIUM [Concomitant]
     Active Substance: CALCIUM
  6. CLARITIN-D 12 HOUR [Suspect]
     Active Substance: LORATADINE\PSEUDOEPHEDRINE SULFATE
     Indication: HYPERSENSITIVITY
     Dosage: UNK
     Route: 065
  7. SIMVASTATIN. [Concomitant]
     Active Substance: SIMVASTATIN
  8. GLUCOSAMINE + CHONDROITIN          /01430901/ [Concomitant]
  9. ENBREL [Suspect]
     Active Substance: ETANERCEPT
     Dosage: UNK
     Route: 058
  10. VITAMIN D                          /00107901/ [Concomitant]
     Active Substance: ERGOCALCIFEROL
  11. OXYTROL [Concomitant]
     Active Substance: OXYBUTYNIN

REACTIONS (11)
  - Cough [Recovered/Resolved]
  - Dizziness [Recovered/Resolved]
  - Cataract [Unknown]
  - Retinal operation [Unknown]
  - Arthralgia [Unknown]
  - Influenza [Recovered/Resolved]
  - Rheumatoid arthritis [Recovering/Resolving]
  - Dysphonia [Recovering/Resolving]
  - Sinus congestion [Recovered/Resolved]
  - Pyrexia [Recovered/Resolved]
  - Oropharyngeal pain [Recovered/Resolved]

NARRATIVE: CASE EVENT DATE: 2015
